FAERS Safety Report 4704784-4 (Version None)
Quarter: 2005Q2

REPORT INFORMATION
  Report Type: 
  Country: None (occurrence: None)
  Receive Date: 20050630
  Receipt Date: 20050627
  Transmission Date: 20051028
  Serious: Yes (Death)
  Sender: FDA-Public Use
  Company Number: 200510266BYL

PATIENT
  Age: 70 Year
  Sex: Male
  Weight: 61.1 kg

DRUGS (5)
  1. CIPROFLOXACIN [Suspect]
     Indication: C-REACTIVE PROTEIN INCREASED
     Dosage: 300 MG, QD, INTRAVENOUS DRIP
     Route: 041
     Dates: start: 20050418, end: 20050419
  2. MAXIPIME [Suspect]
     Indication: C-REACTIVE PROTEIN INCREASED
     Dosage: 2 G, TOTAL DAILY, INTRAVENOUS DRIP
     Route: 041
     Dates: start: 20050415, end: 20050418
  3. GEMZAR [Suspect]
     Indication: LUNG CARCINOMA CELL TYPE UNSPECIFIED STAGE III
     Dosage: 1500 MG, QD, INTRAVENOUS DRIP
     Route: 041
     Dates: start: 20050418
  4. KYTRIL [Suspect]
     Dosage: 3 MG, QD, INTRAVENOUS DRIP
     Route: 041
     Dates: start: 20050418
  5. PICIBANIL [Concomitant]

REACTIONS (4)
  - ACUTE RESPIRATORY FAILURE [None]
  - DISSEMINATED INTRAVASCULAR COAGULATION [None]
  - DYSPNOEA [None]
  - LUNG DISORDER [None]
